FAERS Safety Report 6550292-8 (Version None)
Quarter: 2010Q1

REPORT INFORMATION
  Report Type: 
  Country: None (occurrence: None)
  Receive Date: 20100119
  Receipt Date: 20090729
  Transmission Date: 20100710
  Serious: Yes (Disabling, Other)
  Sender: FDA-Public Use
  Company Number: APP200900454

PATIENT
  Age: 18 Year
  Sex: Female

DRUGS (3)
  1. SENSORCAINE [Suspect]
     Indication: PROCEDURAL PAIN
     Dosage: CONTINUOUS VIA PUMP RIGHT KNEE, INTRA-ARTICULAR
     Route: 014
  2. BUPIVACAINE HYDROCHLORIDE AND EPINEPHRINE [Suspect]
     Indication: PROCEDURAL PAIN
     Dosage: WITH MORPHINE, INTRA-ARTICULAR
     Route: 014
  3. PAIN PUMP [Suspect]
     Indication: PROCEDURAL PAIN
     Dosage: RIGHT KNEE

REACTIONS (3)
  - CHONDROLYSIS [None]
  - CHONDROPATHY [None]
  - JOINT EFFUSION [None]
